FAERS Safety Report 12691417 (Version 9)
Quarter: 2016Q4

REPORT INFORMATION
  Report Type: Spontaneous
  Country: US (occurrence: US)
  Receive Date: 20160826
  Receipt Date: 20161108
  Transmission Date: 20170207
  Serious: Yes (Other)
  Sender: FDA-Public Use
  Company Number: US-CELGENEUS-USA-2016085855

PATIENT
  Age: 58 Year
  Sex: Male

DRUGS (5)
  1. BENADRYL [Concomitant]
     Active Substance: DIPHENHYDRAMINE HYDROCHLORIDE
     Indication: PSORIASIS
     Route: 065
     Dates: start: 20160828
  2. DESONIDE. [Concomitant]
     Active Substance: DESONIDE
     Indication: PSORIASIS
     Route: 061
     Dates: start: 20161007
  3. OTEZLA [Suspect]
     Active Substance: APREMILAST
     Route: 048
     Dates: start: 20160722
  4. OTEZLA [Suspect]
     Active Substance: APREMILAST
     Route: 048
     Dates: start: 20160729
  5. OTEZLA [Suspect]
     Active Substance: APREMILAST
     Indication: PSORIASIS
     Route: 048
     Dates: start: 20160627

REACTIONS (8)
  - Malaise [Not Recovered/Not Resolved]
  - Psoriasis [Not Recovered/Not Resolved]
  - Diarrhoea [Recovering/Resolving]
  - Stress [Not Recovered/Not Resolved]
  - Flatulence [Not Recovered/Not Resolved]
  - Abdominal pain [Not Recovered/Not Resolved]
  - Sunburn [Not Recovered/Not Resolved]
  - Anxiety [Not Recovered/Not Resolved]

NARRATIVE: CASE EVENT DATE: 20160703
